FAERS Safety Report 16805273 (Version 1)
Quarter: 2019Q3

REPORT INFORMATION
  Report Type: Spontaneous
  Country: FR (occurrence: FR)
  Receive Date: 20190913
  Receipt Date: 20190913
  Transmission Date: 20191005
  Serious: Yes (Life-Threatening)
  Sender: FDA-Public Use
  Company Number: FR-PFIZER INC-2019394467

PATIENT
  Age: 17 Year
  Sex: Male
  Weight: 59 kg

DRUGS (3)
  1. LYRICA [Suspect]
     Active Substance: PREGABALIN
     Indication: HEADACHE
     Dosage: 1200 MG, SINGLE, (DECLARED QUANTITY INGESTED)
     Route: 048
     Dates: start: 20190820, end: 20190820
  2. RIVOTRIL [Suspect]
     Active Substance: CLONAZEPAM
     Indication: HEADACHE
     Dosage: 42 MG, SINGLE, (DECLARED QUANTITY INGESTED)
     Route: 048
     Dates: start: 20190820, end: 20190820
  3. CANNABIS [Concomitant]
     Active Substance: CANNABIS SATIVA SUBSP. INDICA TOP
     Dosage: 7 DF, 1X/DAY (DECLARED QUANTITY INGESTED 7 JOINTS)
     Route: 055

REACTIONS (2)
  - Coma [Recovered/Resolved]
  - Drug abuse [Recovered/Resolved]

NARRATIVE: CASE EVENT DATE: 20190820
